FAERS Safety Report 5043851-5 (Version None)
Quarter: 2006Q2

REPORT INFORMATION
  Report Type: 
  Country: None (occurrence: None)
  Receive Date: 20060628
  Receipt Date: 20060615
  Transmission Date: 20061013
  Serious: Yes (Other)
  Sender: FDA-Public Use
  Company Number: 200514915BCC

PATIENT
  Age: 37 Year
  Sex: Male
  Weight: 78.0187 kg

DRUGS (6)
  1. ALEVE [Suspect]
     Indication: HEADACHE
     Dosage: 220-440 MG ORAL
     Route: 048
     Dates: start: 20040101
  2. ALEVE [Suspect]
     Indication: PAIN
     Dosage: 220-440 MG ORAL
     Route: 048
     Dates: start: 20040101
  3. ALEVE [Suspect]
     Indication: TOOTHACHE
     Dosage: 220-440 MG ORAL
     Route: 048
     Dates: start: 20040101
  4. TRAMADOL HCL [Concomitant]
  5. CLONAZEPAM [Concomitant]
  6. GUAIFENESIN [Concomitant]

REACTIONS (4)
  - ANGER [None]
  - DISTURBANCE IN ATTENTION [None]
  - MOOD SWINGS [None]
  - SUICIDAL BEHAVIOUR [None]
